FAERS Safety Report 18158274 (Version 1)
Quarter: 2020Q3

REPORT INFORMATION
  Report Type: Spontaneous
  Country: US (occurrence: US)
  Receive Date: 20200817
  Receipt Date: 20200817
  Transmission Date: 20201103
  Serious: No
  Sender: FDA-Public Use
  Company Number: US-THERAPEUTICSMD-2020TMD02932

PATIENT
  Age: 51 Year
  Sex: Female
  Weight: 68.03 kg

DRUGS (7)
  1. LIFE ACTIVATED SUPPLEMENT [Concomitant]
  2. ELDERBERRY [Concomitant]
     Active Substance: HERBALS
  3. MULTIVITAMIN [Concomitant]
     Active Substance: VITAMINS
  4. UNSPECIFIED VITAMINS [Concomitant]
     Active Substance: VITAMINS
  5. BIJUVA [Suspect]
     Active Substance: ESTRADIOL\PROGESTERONE
     Indication: HOT FLUSH
     Dosage: 1 CAPSULE, 1X/DAY AT NIGHT
     Route: 048
     Dates: start: 20200619, end: 20200703
  6. BIJUVA [Suspect]
     Active Substance: ESTRADIOL\PROGESTERONE
     Dosage: 1 CAPSULE, 1X/DAY AT NIGHT
     Route: 048
     Dates: start: 20200707
  7. VITAMIN D [Concomitant]
     Active Substance: VITAMIN D NOS

REACTIONS (2)
  - Dermatitis contact [Recovering/Resolving]
  - Urticaria [Recovering/Resolving]

NARRATIVE: CASE EVENT DATE: 20200703
